FAERS Safety Report 5746079-6 (Version None)
Quarter: 2008Q2

REPORT INFORMATION
  Report Type: 
  Country: None (occurrence: None)
  Receive Date: 20080522
  Receipt Date: 20070710
  Transmission Date: 20081010
  Serious: No
  Sender: FDA-Public Use
  Company Number: A0629677A

PATIENT
  Age: 71 Year
  Sex: Female

DRUGS (1)
  1. BACTROBAN [Suspect]
     Indication: DRUG USE FOR UNKNOWN INDICATION
     Route: 061
     Dates: start: 20060303, end: 20060303

REACTIONS (2)
  - HYPERSENSITIVITY [None]
  - SKIN BURNING SENSATION [None]
